FAERS Safety Report 5196179-7 (Version None)
Quarter: 2006Q4

REPORT INFORMATION
  Report Type: 
  Country: None (occurrence: None)
  Receive Date: 20061222
  Receipt Date: 20061207
  Transmission Date: 20070319
  Serious: Yes (Hospitalization)
  Sender: FDA-Public Use
  Company Number: 310001N06JPN

PATIENT
  Age: 22 Year
  Sex: Male
  Weight: 65 kg

DRUGS (2)
  1. GONAL-F [Suspect]
     Indication: ILL-DEFINED DISORDER
     Dosage: 75, 2 IN 1 WEEKS, SUBCUTANEOUS
     Route: 058
     Dates: start: 20060401, end: 20061204
  2. PROFASI (CHORIONIC GONADROPIN FOR INJECTION, USP) (CHORIONIC GONADOTRO [Suspect]
     Indication: ILL-DEFINED DISORDER
     Dosage: 5000, 2 IN 1 WEEKS, SUBCUTANEOUS
     Route: 058

REACTIONS (1)
  - TESTICULAR NEOPLASM [None]
